FAERS Safety Report 4582107-1 (Version None)
Quarter: 2005Q1

REPORT INFORMATION
  Report Type: 
  Country: None (occurrence: None)
  Receive Date: 20050119
  Receipt Date: 20031211
  Transmission Date: 20050727
  Serious: Yes (Hospitalization)
  Sender: FDA-Public Use
  Company Number: A03200302974

PATIENT
  Age: 65 Year
  Sex: Male
  Weight: 122.4712 kg

DRUGS (13)
  1. PLAVIX [Suspect]
     Indication: STENT PLACEMENT
     Dosage: 75 MG QD - ORAL
     Route: 048
     Dates: start: 20030501
  2. GLIPIZIDE [Concomitant]
  3. GABAPENTIN [Concomitant]
  4. HYDROCODONE + ACETAMINOPHEN [Concomitant]
  5. ALPRAZOLAM [Concomitant]
  6. FINASTERIDE [Concomitant]
  7. ISOSORBIDE DINITRATE [Concomitant]
  8. ACETYLSALICYLIC ACID SRT [Concomitant]
  9. TERAZOSIN [Concomitant]
  10. TIZANIDINE HCL [Concomitant]
  11. ESOMEPRAZOLE [Concomitant]
  12. METOPROLOL SUCCINATE [Concomitant]
  13. OXYCODONE HCL [Concomitant]

REACTIONS (3)
  - ANAL DISCOMFORT [None]
  - NAUSEA [None]
  - PALPITATIONS [None]
